FAERS Safety Report 24059658 (Version 1)
Quarter: 2024Q3

REPORT INFORMATION
  Report Type: Spontaneous
  Country: US (occurrence: None)
  Receive Date: 20240704
  Receipt Date: 20240704
  Transmission Date: 20241017
  Serious: No
  Sender: Public
  Company Number: None

PATIENT
  Age: 50 Year
  Sex: Female
  Weight: 73.8 kg

DRUGS (6)
  1. QUVIVIQ [Suspect]
     Active Substance: DARIDOREXANT
     Indication: Insomnia
     Dosage: 1 TABLET AT BEDTIME ORAL
     Route: 048
     Dates: start: 20240621, end: 20240624
  2. FLONASE [Concomitant]
     Active Substance: FLUTICASONE PROPIONATE
  3. MELOXICAM [Concomitant]
     Active Substance: MELOXICAM
  4. VITAMINS [Concomitant]
     Active Substance: VITAMINS
  5. LYSINE [Concomitant]
     Active Substance: LYSINE
  6. CALCIUM [Concomitant]
     Active Substance: CALCIUM

REACTIONS (3)
  - Irritable bowel syndrome [None]
  - Insomnia [None]
  - Paradoxical drug reaction [None]

NARRATIVE: CASE EVENT DATE: 20240624
